FAERS Safety Report 11072615 (Version 9)
Quarter: 2017Q1

REPORT INFORMATION
  Report Type: Report from Study
  Country: CA (occurrence: CA)
  Receive Date: 20150428
  Receipt Date: 20170228
  Transmission Date: 20170428
  Serious: Yes (Other)
  Sender: FDA-Public Use
  Company Number: CA-ROCHE-1342168

PATIENT
  Age: 40 Year
  Sex: Female
  Weight: 86.2 kg

DRUGS (9)
  1. METHYLPREDNISOLONE. [Concomitant]
     Active Substance: METHYLPREDNISOLONE
     Indication: PREMEDICATION
     Route: 042
     Dates: start: 20140123
  2. ACETAMINOPHEN. [Concomitant]
     Active Substance: ACETAMINOPHEN
     Indication: PREMEDICATION
     Route: 048
     Dates: start: 20140123
  3. RITUXAN [Suspect]
     Active Substance: RITUXIMAB
     Indication: RHEUMATOID ARTHRITIS
     Dosage: LAST DOSE 04/APR/2015
     Route: 042
     Dates: start: 20140106
  4. TYLENOL [Suspect]
     Active Substance: ACETAMINOPHEN
     Indication: PRODUCT USED FOR UNKNOWN INDICATION
     Route: 065
  5. LEFLUNOMIDE. [Concomitant]
     Active Substance: LEFLUNOMIDE
  6. DIPHENHYDRAMINE. [Concomitant]
     Active Substance: DIPHENHYDRAMINE
     Indication: PREMEDICATION
     Route: 048
     Dates: start: 20140123
  7. SYNTHROID [Concomitant]
     Active Substance: LEVOTHYROXINE SODIUM
  8. PREDNISONE. [Concomitant]
     Active Substance: PREDNISONE
  9. MORPHINE SULFATE IR [Concomitant]
     Active Substance: MORPHINE SULFATE

REACTIONS (27)
  - Ear infection [Recovered/Resolved]
  - Muscle twitching [Not Recovered/Not Resolved]
  - White blood cell count decreased [Recovered/Resolved]
  - Aspartate aminotransferase increased [Recovered/Resolved]
  - Chest discomfort [Recovered/Resolved]
  - Foot deformity [Unknown]
  - Arthralgia [Unknown]
  - Joint dislocation [Not Recovered/Not Resolved]
  - Weight increased [Unknown]
  - Dry eye [Unknown]
  - Pyrexia [Not Recovered/Not Resolved]
  - Pain [Not Recovered/Not Resolved]
  - Sinus operation [Not Recovered/Not Resolved]
  - Chest pain [Not Recovered/Not Resolved]
  - Hyperkeratosis [Not Recovered/Not Resolved]
  - Back disorder [Not Recovered/Not Resolved]
  - Ear pain [Not Recovered/Not Resolved]
  - Rheumatoid arthritis [Not Recovered/Not Resolved]
  - Alanine aminotransferase increased [Unknown]
  - Gamma-glutamyltransferase increased [Unknown]
  - Herpes zoster [Not Recovered/Not Resolved]
  - Headache [Not Recovered/Not Resolved]
  - Rheumatoid arthritis [Not Recovered/Not Resolved]
  - Medication error [Unknown]
  - Blood alkaline phosphatase increased [Recovered/Resolved]
  - Musculoskeletal stiffness [Unknown]
  - Cough [Not Recovered/Not Resolved]

NARRATIVE: CASE EVENT DATE: 20140123
